FAERS Safety Report 4400073-6 (Version None)
Quarter: 2004Q3

REPORT INFORMATION
  Report Type: 
  Country: None (occurrence: None)
  Receive Date: 20040714
  Receipt Date: 20040630
  Transmission Date: 20050211
  Serious: Yes (Disabling)
  Sender: FDA-Public Use
  Company Number: 2004219360FR

PATIENT
  Age: 86 Year
  Sex: Female
  Weight: 90 kg

DRUGS (4)
  1. CELEBREX [Suspect]
     Indication: LOCALISED OSTEOARTHRITIS
     Dosage: 200  MG, QD, ORAL
     Route: 048
     Dates: start: 20040517, end: 20040101
  2. CELEBREX [Suspect]
     Indication: LOCALISED OSTEOARTHRITIS
     Dosage: 200  MG, QD, ORAL
     Route: 048
     Dates: start: 20040601, end: 20040601
  3. AMARYL [Concomitant]
  4. LEVOTHYROXINE SODIUM [Concomitant]

REACTIONS (2)
  - OEDEMA PERIPHERAL [None]
  - PURPURA [None]
